FAERS Safety Report 21338752 (Version 1)
Quarter: 2022Q3

REPORT INFORMATION
  Report Type: Spontaneous
  Country: CA (occurrence: CA)
  Receive Date: 20220915
  Receipt Date: 20220915
  Transmission Date: 20221026
  Serious: Yes (Life-Threatening)
  Sender: FDA-Public Use
  Company Number: CA-BAUSCH-BL-2022-021873

PATIENT
  Age: 8 Year
  Sex: Male

DRUGS (7)
  1. DEXAMETHASONE [Suspect]
     Active Substance: DEXAMETHASONE
     Indication: Anaplastic large-cell lymphoma
     Route: 037
  2. HYDROCORTISONE [Suspect]
     Active Substance: HYDROCORTISONE
     Indication: Anaplastic large-cell lymphoma
     Dosage: SECOND CYCLE
     Route: 037
  3. METHOTREXATE [Suspect]
     Active Substance: METHOTREXATE
     Indication: Anaplastic large-cell lymphoma
     Dosage: SECOND CYCLE
     Route: 037
  4. CYTARABINE [Suspect]
     Active Substance: CYTARABINE
     Indication: Anaplastic large-cell lymphoma
     Dosage: SECOND CYCLE
     Route: 037
  5. MANNITOL [Suspect]
     Active Substance: MANNITOL
     Indication: Anaplastic large-cell lymphoma
     Route: 065
  6. SODIUM CHLORIDE [Suspect]
     Active Substance: SODIUM CHLORIDE
     Indication: Anaplastic large-cell lymphoma
     Route: 065
  7. CERITINIB [Suspect]
     Active Substance: CERITINIB
     Indication: Anaplastic large-cell lymphoma
     Route: 065

REACTIONS (1)
  - Therapy non-responder [Unknown]
